FAERS Safety Report 20874236 (Version 1)
Quarter: 2022Q2

REPORT INFORMATION
  Report Type: Spontaneous
  Country: US (occurrence: None)
  Receive Date: 20220525
  Receipt Date: 20220525
  Transmission Date: 20220721
  Serious: No
  Sender: FDA-Public Use
  Company Number: None

PATIENT
  Age: 62 Year
  Sex: Female

DRUGS (1)
  1. CARBOPLATIN [Suspect]
     Active Substance: CARBOPLATIN
     Indication: Endometrial cancer
     Dosage: OTHER QUANTITY : N/A;?OTHER FREQUENCY : OTHER;?
     Route: 042
     Dates: end: 202204

REACTIONS (3)
  - Anaphylactic reaction [None]
  - Infusion related reaction [None]
  - Loss of consciousness [None]

NARRATIVE: CASE EVENT DATE: 20220418
